FAERS Safety Report 23433275 (Version 1)
Quarter: 2024Q1

REPORT INFORMATION
  Report Type: Report from Study
  Country: CA (occurrence: CA)
  Receive Date: 20240123
  Receipt Date: 20240123
  Transmission Date: 20240409
  Serious: Yes (Other)
  Sender: FDA-Public Use
  Company Number: CA-OTSUKA-2021_010075

PATIENT
  Age: 87 Year
  Sex: Female

DRUGS (2)
  1. CEDAZURIDINE\DECITABINE [Suspect]
     Active Substance: CEDAZURIDINE\DECITABINE
     Indication: Myelodysplastic syndrome
     Dosage: 1 DF (35 MG OF DECITABINE AND 100 MG OF CEDAZURIDINE) DAILY FOR 3 DAYS OF EVERY 28 DAY CYCLE
     Route: 065
     Dates: start: 20210301
  2. CEDAZURIDINE\DECITABINE [Suspect]
     Active Substance: CEDAZURIDINE\DECITABINE
     Dosage: UNK, ON DAY 1 TO 3 ONLY (DOSE REDUCED) ^DIE^ OF 28-DAYS CYCLE
     Route: 048
     Dates: start: 20210901

REACTIONS (18)
  - Bronchitis [Recovering/Resolving]
  - Malaise [Recovering/Resolving]
  - Red blood cell count abnormal [Unknown]
  - White blood cell count abnormal [Unknown]
  - Blast cells [Unknown]
  - Biopsy bone marrow [Unknown]
  - General physical health deterioration [Unknown]
  - Vertigo [Not Recovered/Not Resolved]
  - Dizziness [Recovering/Resolving]
  - Fatigue [Not Recovered/Not Resolved]
  - Asthenia [Not Recovered/Not Resolved]
  - Urinary tract infection [Not Recovered/Not Resolved]
  - Respiratory tract infection viral [Recovering/Resolving]
  - COVID-19 [Unknown]
  - Nausea [Not Recovered/Not Resolved]
  - Pyrexia [Unknown]
  - Platelet count decreased [Not Recovered/Not Resolved]
  - Inappropriate schedule of product administration [Unknown]

NARRATIVE: CASE EVENT DATE: 20230207
